FAERS Safety Report 7741537-7 (Version None)
Quarter: 2011Q3

REPORT INFORMATION
  Report Type: 
  Country: None (occurrence: None)
  Receive Date: 20110909
  Receipt Date: 20110830
  Transmission Date: 20111222
  Serious: Yes (Other)
  Sender: FDA-Public Use
  Company Number: FR-GENENTECH-323972

PATIENT
  Sex: Male

DRUGS (2)
  1. CHEMOTHERAPY NOS [Concomitant]
     Indication: B-CELL LYMPHOMA
     Dosage: UNK
  2. MABTHERA [Suspect]
     Indication: B-CELL LYMPHOMA
     Dosage: UNK
     Route: 042

REACTIONS (1)
  - VENOOCCLUSIVE DISEASE [None]
